FAERS Safety Report 5458812-1 (Version None)
Quarter: 2007Q3

REPORT INFORMATION
  Report Type: 
  Country: None (occurrence: None)
  Receive Date: 20070919
  Receipt Date: 20070914
  Transmission Date: 20080115
  Serious: No
  Sender: FDA-Public Use
  Company Number: JP-SP-2007-00498

PATIENT
  Age: 80 Year
  Sex: Male

DRUGS (3)
  1. IMMUCYST [Suspect]
     Indication: BLADDER CANCER
     Route: 043
     Dates: start: 20060921, end: 20061005
  2. DICLOFENAC SODIUM [Concomitant]
     Route: 054
     Dates: start: 20060921, end: 20061026
  3. LEUPROLIDE ACETATE [Concomitant]
     Route: 058
     Dates: start: 20060920, end: 20070219

REACTIONS (2)
  - CYSTITIS [None]
  - DYSURIA [None]
